FAERS Safety Report 6389031-2 (Version None)
Quarter: 2009Q4

REPORT INFORMATION
  Report Type: 
  Country: None (occurrence: None)
  Receive Date: 20091001
  Receipt Date: 20090922
  Transmission Date: 20100525
  Serious: Yes (Disabling, Other)
  Sender: FDA-Public Use
  Company Number: ADR30112009

PATIENT
  Age: 73 Year
  Sex: Male

DRUGS (18)
  1. RAMIPRIL [Suspect]
     Indication: HYPERTENSION
     Dosage: 1.25 MG
     Route: 048
     Dates: start: 20070309, end: 20070316
  2. RAMIPRIL [Suspect]
     Indication: PROPHYLAXIS
     Dosage: 1.25 MG
     Route: 048
     Dates: start: 20070309, end: 20070316
  3. CARBOCYSTEINE [Concomitant]
  4. CETIRIZINE HCL [Concomitant]
  5. FERROUS SULFATE TAB [Concomitant]
  6. FUROSEMIDE [Concomitant]
  7. IPRATROPIUM [Concomitant]
  8. LACTULOSE [Concomitant]
  9. LANSOPRAZOLE [Concomitant]
  10. NOVOMIX [Concomitant]
  11. NOVORAPID [Concomitant]
  12. PREDNISOLONE [Concomitant]
  13. QUININE [Concomitant]
  14. ALBUTEROL [Concomitant]
  15. SENNA [Concomitant]
  16. SERETIDE [Concomitant]
  17. SIMVASTATIN [Concomitant]
  18. THEOPHYLLINE [Concomitant]

REACTIONS (2)
  - AGITATION [None]
  - INSOMNIA [None]
